FAERS Safety Report 16469143 (Version 4)
Quarter: 2019Q3

REPORT INFORMATION
  Report Type: Report from Study
  Country: AU (occurrence: AU)
  Receive Date: 20190624
  Receipt Date: 20190916
  Transmission Date: 20191004
  Serious: Yes (Other)
  Sender: FDA-Public Use
  Company Number: AU-OTSUKA-2019_001169

PATIENT
  Age: 54 Year
  Sex: Male

DRUGS (4)
  1. TOLVAPTAN [Suspect]
     Active Substance: TOLVAPTAN
     Dosage: 30 MG, UNK
     Route: 065
  2. TOLVAPTAN [Suspect]
     Active Substance: TOLVAPTAN
     Indication: CONGENITAL CYSTIC KIDNEY DISEASE
     Dosage: 45 MG, UNK
     Route: 065
  3. TOLVAPTAN [Suspect]
     Active Substance: TOLVAPTAN
     Dosage: 15 MG, UNK
     Route: 065
  4. TOLVAPTAN [Suspect]
     Active Substance: TOLVAPTAN
     Dosage: 60 MG, UNK
     Route: 065

REACTIONS (11)
  - Haemoglobin decreased [Recovered/Resolved]
  - Glomerular filtration rate decreased [Not Recovered/Not Resolved]
  - Lymphocyte count decreased [Recovered/Resolved]
  - Overweight [Not Recovered/Not Resolved]
  - Blood urea increased [Not Recovered/Not Resolved]
  - Lymphocyte count decreased [Unknown]
  - Blood creatinine increased [Not Recovered/Not Resolved]
  - Urine albumin/creatinine ratio increased [Not Recovered/Not Resolved]
  - Albumin urine present [Not Recovered/Not Resolved]
  - White blood cell count increased [Recovered/Resolved]
  - Red blood cell count decreased [Recovered/Resolved]

NARRATIVE: CASE EVENT DATE: 20180912
